FAERS Safety Report 8446241 (Version 5)
Quarter: 2016Q2

REPORT INFORMATION
  Report Type: Spontaneous
  Country: DE (occurrence: DE)
  Receive Date: 20120307
  Receipt Date: 20160421
  Transmission Date: 20160815
  Serious: Yes (Hospitalization)
  Sender: FDA-Public Use
  Company Number: PHHY2012DE016572

PATIENT
  Age: 13 Year
  Sex: Female
  Weight: 39.6 kg

DRUGS (9)
  1. VIGANTOLETTEN [Concomitant]
     Active Substance: CHOLECALCIFEROL
     Indication: VITAMIN D DEFICIENCY
     Dosage: 2000 MG PERDAY
     Route: 048
     Dates: start: 20120110
  2. VOTUBIA [Suspect]
     Active Substance: EVEROLIMUS
     Dosage: 1.6 NG/ML, UNK
     Route: 065
  3. VOTUBIA [Suspect]
     Active Substance: EVEROLIMUS
     Indication: ASTROCYTOMA, LOW GRADE
     Dosage: 2.5 MG PER DAY
     Route: 048
     Dates: start: 20120111, end: 20120208
  4. VOTUBIA [Suspect]
     Active Substance: EVEROLIMUS
     Dosage: 5 MG, QD PER DAY
     Route: 048
     Dates: start: 20120209, end: 20120223
  5. VOTUBIA [Suspect]
     Active Substance: EVEROLIMUS
     Dosage: 5 MG, QD
     Route: 065
     Dates: start: 201201
  6. OSPOLOT [Concomitant]
     Active Substance: SULTHIAME
     Indication: SEIZURE
     Dosage: 175 MG DAILY
     Route: 048
     Dates: start: 200808
  7. SULTIAME [Concomitant]
     Active Substance: SULTHIAME
     Indication: PRODUCT USED FOR UNKNOWN INDICATION
     Dosage: 150 MG, QD ((1.5?G/ML))
     Route: 065
  8. TEGRETAL [Concomitant]
     Active Substance: CARBAMAZEPINE
     Indication: SEIZURE
     Dosage: 100 MG PER DAY
     Route: 048
     Dates: start: 200903
  9. LEVETIRACETAM. [Suspect]
     Active Substance: LEVETIRACETAM
     Indication: GENERALISED TONIC-CLONIC SEIZURE
     Dosage: 50 MG/KG, UNK
     Route: 065

REACTIONS (2)
  - Epilepsy [Recovered/Resolved]
  - Generalised tonic-clonic seizure [Recovered/Resolved]

NARRATIVE: CASE EVENT DATE: 20120221
